FAERS Safety Report 7874781-9 (Version None)
Quarter: 2011Q3

REPORT INFORMATION
  Report Type: 
  Country: None (occurrence: None)
  Receive Date: 20110930
  Receipt Date: 20101112
  Transmission Date: 20111222
  Serious: Yes (Disabling)
  Sender: FDA-Public Use
  Company Number: 2010110035

PATIENT
  Age: 13 Year
  Sex: Male
  Weight: 28 kg

DRUGS (4)
  1. KEPPRA [Concomitant]
  2. DEPAKOTE [Concomitant]
  3. FELBATOL [Suspect]
     Indication: EPILEPSY
     Dosage: (600 MG, Q AM + PM), ORAL
     Route: 048
     Dates: start: 20100301, end: 20100501
  4. CLONAZEPAM [Concomitant]

REACTIONS (2)
  - GAIT DISTURBANCE [None]
  - LIVEDO RETICULARIS [None]
